FAERS Safety Report 5219495-9 (Version None)
Quarter: 2007Q1

REPORT INFORMATION
  Report Type: 
  Country: None (occurrence: None)
  Receive Date: 20070124
  Receipt Date: 20070124
  Transmission Date: 20070707
  Serious: Yes (Other)
  Sender: FDA-Public Use
  Company Number: None

PATIENT
  Age: 49 Year
  Sex: Male
  Weight: 74.4 kg

DRUGS (2)
  1. SIMVASTATIN [Suspect]
  2. LISINOPRIL [Concomitant]

REACTIONS (2)
  - NAUSEA [None]
  - VOMITING [None]
